FAERS Safety Report 8900462 (Version 1)
Quarter: 2012Q4

REPORT INFORMATION
  Report Type: 
  Country: CA (occurrence: CA)
  Receive Date: 20121109
  Receipt Date: 20121109
  Transmission Date: 20130627
  Serious: Yes (Hospitalization, Other)
  Sender: FDA-Public Use
  Company Number: PHHY2009CA00772

PATIENT
  Sex: Male

DRUGS (1)
  1. SANDOSTATIN LAR [Suspect]
     Indication: HEPATIC NEOPLASM MALIGNANT
     Dosage: 30 mg, QMO
     Route: 030
     Dates: start: 20081007, end: 20081230

REACTIONS (4)
  - Terminal state [Unknown]
  - Confusional state [Unknown]
  - Pain [Unknown]
  - Blood pressure systolic increased [Unknown]
